FAERS Safety Report 7414263-1 (Version None)
Quarter: 2011Q2

REPORT INFORMATION
  Report Type: 
  Country: None (occurrence: None)
  Receive Date: 20110411
  Receipt Date: 20110411
  Transmission Date: 20111010
  Serious: No
  Sender: FDA-Public Use
  Company Number: None

PATIENT
  Age: 70 Year
  Sex: Male

DRUGS (3)
  1. LEVETIRACETAM [Suspect]
     Dates: start: 20100126, end: 20100504
  2. TEMOZOLOMIDE [Suspect]
     Dates: start: 20100308, end: 20100422
  3. SIMVASTATIN [Suspect]
     Dates: start: 20100412, end: 20100504

REACTIONS (9)
  - LIVER INJURY [None]
  - ASPARTATE AMINOTRANSFERASE INCREASED [None]
  - CONFUSIONAL STATE [None]
  - CHOLESTASIS [None]
  - CHOLANGITIS [None]
  - ALANINE AMINOTRANSFERASE INCREASED [None]
  - OEDEMA PERIPHERAL [None]
  - JAUNDICE [None]
  - BLOOD ALKALINE PHOSPHATASE INCREASED [None]
